FAERS Safety Report 6013709-3 (Version None)
Quarter: 2008Q4

REPORT INFORMATION
  Report Type: 
  Country: None (occurrence: None)
  Receive Date: 20081219
  Receipt Date: 20081211
  Transmission Date: 20090506
  Serious: Yes (Hospitalization)
  Sender: FDA-Public Use
  Company Number: A0760756A

PATIENT
  Age: 65 Year
  Sex: Female
  Weight: 88 kg

DRUGS (5)
  1. SERETIDE [Suspect]
     Indication: ASTHMA
     Dates: start: 20040101
  2. RIVOTRIL [Concomitant]
     Dates: start: 20040101
  3. GLUCOSAMINE + CHONDROITIN [Concomitant]
     Dates: start: 20070101
  4. CLEXANE [Concomitant]
     Dates: start: 20061201
  5. MAREVAN [Concomitant]
     Dates: start: 20061201, end: 20071201

REACTIONS (4)
  - EMBOLISM [None]
  - FATIGUE [None]
  - THERAPEUTIC RESPONSE UNEXPECTED [None]
  - THROMBOSIS [None]
